FAERS Safety Report 6819069-X (Version None)
Quarter: 2010Q3

REPORT INFORMATION
  Report Type: 
  Country: None (occurrence: None)
  Receive Date: 20100707
  Receipt Date: 20100624
  Transmission Date: 20110219
  Serious: Yes (Hospitalization)
  Sender: FDA-Public Use
  Company Number: DE-JNJFOC-20080900197

PATIENT
  Age: 7 Decade
  Sex: Male
  Weight: 79 kg

DRUGS (33)
  1. GOLIMUMAB [Suspect]
     Indication: RHEUMATOID ARTHRITIS
     Route: 058
  2. GOLIMUMAB [Suspect]
     Route: 058
  3. GOLIMUMAB [Suspect]
     Route: 058
  4. GOLIMUMAB [Suspect]
     Route: 058
  5. GOLIMUMAB [Suspect]
     Route: 058
  6. GOLIMUMAB [Suspect]
     Route: 058
  7. GOLIMUMAB [Suspect]
     Route: 058
  8. GOLIMUMAB [Suspect]
     Route: 058
  9. GOLIMUMAB [Suspect]
     Route: 058
  10. GOLIMUMAB [Suspect]
     Route: 058
  11. GOLIMUMAB [Suspect]
     Route: 058
  12. GOLIMUMAB [Suspect]
     Route: 058
  13. GOLIMUMAB [Suspect]
     Route: 058
  14. GOLIMUMAB [Suspect]
     Route: 058
  15. PLACEBO [Suspect]
     Indication: RHEUMATOID ARTHRITIS
     Route: 058
  16. PLACEBO [Suspect]
     Route: 058
  17. PLACEBO [Suspect]
     Route: 058
  18. PLACEBO [Suspect]
     Route: 058
  19. PLACEBO [Suspect]
     Route: 058
  20. PLACEBO [Suspect]
     Route: 058
  21. PREDNISOLON [Concomitant]
     Route: 048
  22. ACETYLSALICYLIC ACID [Concomitant]
     Route: 048
  23. DIGITOXIN [Concomitant]
     Route: 048
  24. MTX [Concomitant]
     Route: 058
  25. BISOHEXAL [Concomitant]
     Route: 048
  26. TROMCARDIN FORTE [Concomitant]
     Route: 048
  27. MARCUMAR [Concomitant]
     Route: 048
  28. CLEXANE [Concomitant]
     Route: 048
  29. FOLIC ACID [Concomitant]
     Route: 048
  30. VIGANTOLETTEN [Concomitant]
     Route: 048
  31. CALCIMAGON D [Concomitant]
     Route: 048
  32. ENALAPRIL MALEATE AND HYDROCHLOROTHIAZIDE [Concomitant]
     Route: 048
  33. PANTOZOL [Concomitant]
     Route: 048

REACTIONS (1)
  - URINARY TRACT NEOPLASM [None]
